FAERS Safety Report 4573911-4 (Version None)
Quarter: 2005Q1

REPORT INFORMATION
  Report Type: 
  Country: None (occurrence: None)
  Receive Date: 20050203
  Receipt Date: 20041208
  Transmission Date: 20050727
  Serious: Yes (Congenital Anomaly)
  Sender: FDA-Public Use
  Company Number: 9430

PATIENT

DRUGS (5)
  1. METHOTREXATE [Suspect]
     Route: 064
  2. DOXORUBICIN [Concomitant]
  3. IFOSFAMIDE [Concomitant]
  4. CISPLATIN [Concomitant]
  5. HEPARIN [Concomitant]

REACTIONS (6)
  - CONGENITAL EYELID MALFORMATION [None]
  - CONGENITAL ORAL MALFORMATION [None]
  - EAR MALFORMATION [None]
  - FACIAL DYSMORPHISM [None]
  - MATERNAL DRUGS AFFECTING FOETUS [None]
  - SKULL MALFORMATION [None]
